FAERS Safety Report 4293811-7 (Version None)
Quarter: 2004Q1

REPORT INFORMATION
  Report Type: 
  Country: None (occurrence: None)
  Receive Date: 20040210
  Receipt Date: 20040129
  Transmission Date: 20041129
  Serious: Yes (Death)
  Sender: FDA-Public Use
  Company Number: A03200400305

PATIENT
  Age: 0 Day
  Sex: Male

DRUGS (2)
  1. PLAVIX [Suspect]
     Dosage: TRANSPLACENTAL
     Route: 064
     Dates: start: 20030222, end: 20030901
  2. PLAVIX [Suspect]
     Dosage: TRANSPLACENTAL
     Route: 064
     Dates: start: 20031002, end: 20031112

REACTIONS (4)
  - AMNIORRHEXIS [None]
  - CAESAREAN SECTION [None]
  - MATERNAL DRUGS AFFECTING FOETUS [None]
  - PREMATURE BABY [None]
